FAERS Safety Report 24152493 (Version 2)
Quarter: 2024Q3

REPORT INFORMATION
  Report Type: Spontaneous
  Country: DE (occurrence: DE)
  Receive Date: 20240730
  Receipt Date: 20240810
  Transmission Date: 20241017
  Serious: Yes (Life-Threatening, Hospitalization)
  Sender: TEVA
  Company Number: DE-TEVA-VS-3224107

PATIENT
  Age: 66 Year
  Sex: Female

DRUGS (8)
  1. PACLITAXEL [Suspect]
     Active Substance: PACLITAXEL
     Indication: Uterine cancer
     Dosage: SECOND DOSE OF PACLITAXEL VIA A VENOUS PORT CATHETER SYSTEM AFTER AN INITIAL DOSE WAS ADMINISTERE...
     Route: 042
  2. DEXAMETHASONE [Suspect]
     Active Substance: DEXAMETHASONE
     Indication: Anaphylaxis prophylaxis
     Route: 048
  3. DEXAMETHASONE [Suspect]
     Active Substance: DEXAMETHASONE
     Indication: Anaphylaxis prophylaxis
     Dosage: VIA THE PORT CATHETER SYSTEM
     Route: 042
  4. CLEMASTINE FUMARATE [Suspect]
     Active Substance: CLEMASTINE FUMARATE
     Indication: Anaphylaxis prophylaxis
     Dosage: VIA THE PORT CATHETER SYSTEM
     Route: 042
  5. ETOMIDATE [Suspect]
     Active Substance: ETOMIDATE
     Indication: Coma scale abnormal
     Route: 065
  6. MIDAZOLAM [Suspect]
     Active Substance: MIDAZOLAM
     Indication: Coma scale abnormal
     Route: 065
  7. MORPHINE [Suspect]
     Active Substance: MORPHINE
     Indication: Coma scale abnormal
     Route: 065
  8. RANITIDINE [Suspect]
     Active Substance: RANITIDINE
     Indication: Anaphylaxis prophylaxis
     Route: 048

REACTIONS (3)
  - Anaphylactic reaction [Recovering/Resolving]
  - Cardiac arrest [Recovering/Resolving]
  - Drug ineffective [Unknown]
